FAERS Safety Report 7472422-6 (Version None)
Quarter: 2011Q2

REPORT INFORMATION
  Report Type: 
  Country: None (occurrence: None)
  Receive Date: 20110511
  Receipt Date: 20110426
  Transmission Date: 20111010
  Serious: Yes (Other)
  Sender: FDA-Public Use
  Company Number: PHHY2010DE89474

PATIENT
  Sex: Male

DRUGS (2)
  1. MYFORTIC [Suspect]
     Indication: HEART TRANSPLANT
  2. SANDIMMUNE [Suspect]
     Indication: HEART TRANSPLANT

REACTIONS (3)
  - HYPERPHOSPHATASAEMIA [None]
  - BLOOD ALKALINE PHOSPHATASE INCREASED [None]
  - VIRAL INFECTION [None]
